FAERS Safety Report 11436758 (Version 2)
Quarter: 2015Q3

REPORT INFORMATION
  Report Type: Report from Study
  Country: FI (occurrence: FI)
  Receive Date: 20150831
  Receipt Date: 20150925
  Transmission Date: 20151125
  Serious: Yes (Hospitalization, Other)
  Sender: FDA-Public Use
  Company Number: PHHY2015FI104186

PATIENT
  Age: 52 Year
  Sex: Female

DRUGS (12)
  1. LEPONEX [Suspect]
     Active Substance: CLOZAPINE
     Dosage: 125 MG, QD
     Route: 065
     Dates: start: 20150907
  2. DIAPAM [Concomitant]
     Active Substance: DIAZEPAM
     Indication: PRODUCT USED FOR UNKNOWN INDICATION
     Dosage: 5 MG, QD (IN THE MORNING)
     Route: 065
  3. LITHIUM. [Concomitant]
     Active Substance: LITHIUM
     Indication: PRODUCT USED FOR UNKNOWN INDICATION
     Dosage: UNK
     Route: 065
  4. LEPONEX [Suspect]
     Active Substance: CLOZAPINE
     Indication: SCHIZOPHRENIA
     Dosage: UNK (STARTED IN THE 80S)
     Route: 065
     Dates: end: 2002
  5. LAXOBERON [Concomitant]
     Active Substance: SODIUM PICOSULFATE
     Indication: PRODUCT USED FOR UNKNOWN INDICATION
     Dosage: UNK UNK, PRN
     Route: 065
  6. PROPRANOLOL [Concomitant]
     Active Substance: PROPRANOLOL\PROPRANOLOL HYDROCHLORIDE
     Indication: PRODUCT USED FOR UNKNOWN INDICATION
     Dosage: 100 MG, QD (IN THE MORNING)
     Route: 065
  7. DIAPAM [Concomitant]
     Active Substance: DIAZEPAM
     Dosage: 5 MG IN THE MORN, 5 MG IN THE EVEN AND 5 MG WHEN NEEDED
     Route: 065
  8. LEPONEX [Suspect]
     Active Substance: CLOZAPINE
     Dosage: 400 MG, QD
     Route: 065
     Dates: start: 2002, end: 20150504
  9. SEROQUEL [Concomitant]
     Active Substance: QUETIAPINE FUMARATE
     Indication: PRODUCT USED FOR UNKNOWN INDICATION
     Dosage: 200 MG, QD
     Route: 065
  10. DIAPAM [Concomitant]
     Active Substance: DIAZEPAM
     Dosage: 5 MG, QD (IN THE MORNING)
     Route: 065
  11. LEVOLAC [Concomitant]
     Active Substance: LACTULOSE
     Indication: PRODUCT USED FOR UNKNOWN INDICATION
     Dosage: UNK UNK, PRN
     Route: 065
  12. DIAPAM [Concomitant]
     Active Substance: DIAZEPAM
     Dosage: 30 MG, QD
     Route: 065

REACTIONS (18)
  - Mutism [Not Recovered/Not Resolved]
  - Constipation [Recovered/Resolved]
  - Negativism [Unknown]
  - Neutropenia [Recovered/Resolved]
  - Abnormal behaviour [Not Recovered/Not Resolved]
  - Neutropenia [Recovered/Resolved]
  - Suspiciousness [Unknown]
  - Delusion [Not Recovered/Not Resolved]
  - Aggression [Unknown]
  - Crying [Unknown]
  - Thinking abnormal [Unknown]
  - Neutropenia [Recovered/Resolved]
  - Decreased appetite [Unknown]
  - Tachycardia [Unknown]
  - Mental impairment [Recovered/Resolved]
  - Psychotic disorder [Not Recovered/Not Resolved]
  - Irritability [Unknown]
  - Social avoidant behaviour [Unknown]

NARRATIVE: CASE EVENT DATE: 2002
